FAERS Safety Report 19615722 (Version 1)
Quarter: 2021Q3

REPORT INFORMATION
  Report Type: Spontaneous
  Country: US (occurrence: US)
  Receive Date: 20210727
  Receipt Date: 20210727
  Transmission Date: 20211014
  Serious: Yes (Other)
  Sender: FDA-Public Use
  Company Number: US-PFIZER INC-2021907380

PATIENT
  Sex: Male

DRUGS (2)
  1. BOSULIF [Suspect]
     Active Substance: BOSUTINIB MONOHYDRATE
     Indication: MANTLE CELL LYMPHOMA
     Dosage: 400 MG
  2. TRAMADOL. [Concomitant]
     Active Substance: TRAMADOL
     Indication: INTERVERTEBRAL DISC PROTRUSION
     Dosage: UNK

REACTIONS (13)
  - Head discomfort [Unknown]
  - Off label use [Unknown]
  - Nerve compression [Unknown]
  - Joint range of motion decreased [Unknown]
  - Neck pain [Unknown]
  - Spinal cord oedema [Unknown]
  - Diarrhoea [Unknown]
  - Myalgia [Unknown]
  - Ear discomfort [Unknown]
  - Musculoskeletal stiffness [Unknown]
  - Faeces soft [Unknown]
  - Arthralgia [Unknown]
  - Back pain [Unknown]
